FAERS Safety Report 7445450-4 (Version None)
Quarter: 2011Q2

REPORT INFORMATION
  Report Type: 
  Country: None (occurrence: None)
  Receive Date: 20110420
  Receipt Date: 20110407
  Transmission Date: 20111010
  Serious: Yes (Hospitalization)
  Sender: FDA-Public Use
  Company Number: 2011MA003558

PATIENT
  Age: 23 Year
  Sex: Male

DRUGS (1)
  1. TRIAMCINOLONE ACETONIDE [Suspect]
     Indication: ROTATOR CUFF SYNDROME
     Dosage: 30 MG;1X;IA

REACTIONS (7)
  - RASH [None]
  - DYSPNOEA [None]
  - TACHYCARDIA [None]
  - URTICARIA [None]
  - HYPOTENSION [None]
  - PERIORBITAL OEDEMA [None]
  - TYPE I HYPERSENSITIVITY [None]
